FAERS Safety Report 9896321 (Version 1)
Quarter: 2014Q1

REPORT INFORMATION
  Report Type: Spontaneous
  Country: US (occurrence: US)
  Receive Date: 20140213
  Receipt Date: 20140213
  Transmission Date: 20141002
  Serious: No
  Sender: FDA-Public Use
  Company Number: US-BRISTOL-MYERS SQUIBB COMPANY-19058718

PATIENT
  Age: 58 Year
  Sex: Female
  Weight: 76.19 kg

DRUGS (10)
  1. ORENCIA [Suspect]
     Indication: RHEUMATOID ARTHRITIS
     Dosage: 1DF:125MG/ML.
     Route: 058
     Dates: start: 2008
  2. TOPROL [Concomitant]
  3. ASPIRIN [Concomitant]
  4. RAMIPRIL [Concomitant]
  5. PREDNISONE [Concomitant]
  6. PLAVIX [Concomitant]
  7. PANTOPRAZOLE [Concomitant]
  8. METHOTREXATE [Concomitant]
  9. LIPITOR [Concomitant]
  10. RESTASIS [Concomitant]

REACTIONS (1)
  - Drug ineffective [Unknown]
